FAERS Safety Report 8854974 (Version 1)
Quarter: 2012Q4

REPORT INFORMATION
  Report Type: 
  Country: GB (occurrence: GB)
  Receive Date: 20121023
  Receipt Date: 20121023
  Transmission Date: 20130627
  Serious: Yes (Other)
  Sender: FDA-Public Use
  Company Number: GB-AMGEN-GBRSP2012048318

PATIENT
  Age: 39 Year
  Sex: Male

DRUGS (3)
  1. ENBREL [Suspect]
     Indication: ANKYLOSING SPONDYLITIS
     Dosage: 50 mg, weekly
     Route: 058
     Dates: start: 200808, end: 201112
  2. MST                                /00036302/ [Concomitant]
     Dosage: 15 mg, 2x/day
     Route: 048
  3. IBUPROFEN [Concomitant]
     Dosage: 200-400mg 4x/day as needed

REACTIONS (5)
  - Thinking abnormal [Recovered/Resolved]
  - Aggression [Recovered/Resolved]
  - Impatience [Recovered/Resolved]
  - Abnormal behaviour [Unknown]
  - Personality change [Recovered/Resolved]
